FAERS Safety Report 14271501 (Version 2)
Quarter: 2018Q2

REPORT INFORMATION
  Report Type: Report from Study
  Country: CR (occurrence: CR)
  Receive Date: 20171211
  Receipt Date: 20180424
  Transmission Date: 20180711
  Serious: Yes (Death, Life-Threatening, Other)
  Sender: FDA-Public Use
  Company Number: PHHY2017CR183093

PATIENT
  Age: 73 Year
  Sex: Female

DRUGS (1)
  1. VYMADA [Suspect]
     Active Substance: SACUBITRIL\VALSARTAN
     Indication: PRODUCT USED FOR UNKNOWN INDICATION
     Dosage: 50 MG, UNK
     Route: 065

REACTIONS (5)
  - Cardiac failure [Unknown]
  - Death [Fatal]
  - Myocardial infarction [Unknown]
  - Loss of consciousness [Unknown]
  - Dementia [Unknown]

NARRATIVE: CASE EVENT DATE: 20171228
